FAERS Safety Report 6999746-0 (Version None)
Quarter: 2010Q3

REPORT INFORMATION
  Report Type: 
  Country: None (occurrence: None)
  Receive Date: 20100920
  Receipt Date: 20100205
  Transmission Date: 20110219
  Serious: No
  Sender: FDA-Public Use
  Company Number: US-ASTRAZENECA-2010SE05449

PATIENT
  Sex: Female
  Weight: 127 kg

DRUGS (8)
  1. SEROQUEL [Suspect]
     Indication: BIPOLAR DISORDER
     Route: 048
     Dates: start: 20050101
  2. SEROQUEL [Suspect]
     Dosage: CUT PILLS IN HALF
     Route: 048
  3. ROBAXIN [Concomitant]
  4. LORTAB [Concomitant]
  5. LEVAQUIN [Concomitant]
  6. TEMAZEPAM [Concomitant]
  7. DOCUSATE SODIUM [Concomitant]
  8. ZOLOFT [Concomitant]

REACTIONS (2)
  - BACK INJURY [None]
  - INCORRECT DOSE ADMINISTERED [None]
